FAERS Safety Report 6534478-4 (Version None)
Quarter: 2010Q1

REPORT INFORMATION
  Report Type: 
  Country: None (occurrence: None)
  Receive Date: 20100112
  Receipt Date: 20090514
  Transmission Date: 20100710
  Serious: Yes (Other)
  Sender: FDA-Public Use
  Company Number: BR-SANOFI-AVENTIS-A01200904737

PATIENT
  Age: 54 Year
  Sex: Male
  Weight: 70 kg

DRUGS (6)
  1. ALFUZOSIN HYDROCHLORIDE [Suspect]
     Indication: BENIGN PROSTATIC HYPERPLASIA
     Dosage: UNIT DOSE: 10 MG
     Route: 048
     Dates: start: 20090408, end: 20090401
  2. ALFUZOSIN HYDROCHLORIDE [Suspect]
     Indication: URINARY RETENTION
     Dosage: UNIT DOSE: 10 MG
     Route: 048
     Dates: start: 20090408, end: 20090401
  3. ALFUZOSIN HYDROCHLORIDE [Suspect]
     Dosage: UNIT DOSE: 10 MG
     Route: 048
     Dates: start: 20090420, end: 20090424
  4. ALFUZOSIN HYDROCHLORIDE [Suspect]
     Dosage: UNIT DOSE: 10 MG
     Route: 048
     Dates: start: 20090420, end: 20090424
  5. CIPROFLOXACIN [Concomitant]
     Indication: ANTIBIOTIC THERAPY
     Route: 048
  6. PYGEUM AFRICANUM [Concomitant]
     Indication: HYPERPLASIA
     Route: 048

REACTIONS (4)
  - ABDOMINAL PAIN [None]
  - CONDITION AGGRAVATED [None]
  - DRUG INEFFECTIVE [None]
  - URINARY RETENTION [None]
